FAERS Safety Report 15653403 (Version 2)
Quarter: 2019Q1

REPORT INFORMATION
  Report Type: Spontaneous
  Country: GB (occurrence: GB)
  Receive Date: 20181124
  Receipt Date: 20190326
  Transmission Date: 20190417
  Serious: Yes (Death)
  Sender: FDA-Public Use
  Company Number: GB-TEVA-2018-GB-977717

PATIENT
  Age: 11 Year
  Sex: Male
  Weight: 31 kg

DRUGS (5)
  1. OXYCODONE [Suspect]
     Active Substance: OXYCODONE
     Route: 042
     Dates: start: 20170113, end: 20170119
  2. MIDAZOLAM [Suspect]
     Active Substance: MIDAZOLAM HYDROCHLORIDE
     Route: 042
     Dates: start: 20170113, end: 20170119
  3. METHADONE [Concomitant]
     Active Substance: METHADONE HYDROCHLORIDE
  4. GABAPENTIN. [Concomitant]
     Active Substance: GABAPENTIN
  5. FENTANYL. [Concomitant]
     Active Substance: FENTANYL

REACTIONS (3)
  - Respiratory depression [Fatal]
  - Coma [Fatal]
  - Overdose [Fatal]

NARRATIVE: CASE EVENT DATE: 20170117
